FAERS Safety Report 10695980 (Version 2)
Quarter: 2015Q1

REPORT INFORMATION
  Report Type: Report from Study
  Country: IE (occurrence: IE)
  Receive Date: 20150107
  Receipt Date: 20150107
  Transmission Date: 20150721
  Serious: Yes (Other)
  Sender: FDA-Public Use
  Company Number: US-ASTRAZENECA-2014SE85936

PATIENT
  Age: 3 Month
  Sex: Female

DRUGS (5)
  1. ANTISEIZURE DRUG [Concomitant]
     Indication: PRODUCT USED FOR UNKNOWN INDICATION
  2. SYNAGIS [Suspect]
     Active Substance: PALIVIZUMAB
     Indication: HEART DISEASE CONGENITAL
     Route: 030
     Dates: start: 20141104
  3. ABIDEC [Concomitant]
     Indication: PRODUCT USED FOR UNKNOWN INDICATION
  4. SABRIL [Concomitant]
     Active Substance: VIGABATRIN
     Indication: PRODUCT USED FOR UNKNOWN INDICATION
  5. SYNAGIS [Suspect]
     Active Substance: PALIVIZUMAB
     Indication: HEART DISEASE CONGENITAL
     Route: 030
     Dates: start: 20141014, end: 20141014

REACTIONS (2)
  - Seizure [Unknown]
  - Seizure [Unknown]

NARRATIVE: CASE EVENT DATE: 20141015
